FAERS Safety Report 10314336 (Version 1)
Quarter: 2014Q3

REPORT INFORMATION
  Report Type: Spontaneous
  Country: GR (occurrence: GR)
  Receive Date: 20140718
  Receipt Date: 20140718
  Transmission Date: 20150326
  Serious: Yes (Other)
  Sender: FDA-Public Use
  Company Number: GR-GLAXOSMITHKLINE-B1015076A

PATIENT
  Sex: Female

DRUGS (6)
  1. AZATHIOPRINE. [Suspect]
     Active Substance: AZATHIOPRINE
     Indication: GRANULOMATOSIS WITH POLYANGIITIS
     Dosage: 125MG PER DAY
     Route: 064
  2. SALBUTAMOL [Suspect]
     Active Substance: ALBUTEROL
     Indication: GRANULOMATOSIS WITH POLYANGIITIS
     Dosage: 200MCG THREE TIMES PER DAY
     Route: 064
  3. FLUTICASONE PROPIONATE. [Suspect]
     Active Substance: FLUTICASONE PROPIONATE
     Indication: GRANULOMATOSIS WITH POLYANGIITIS
     Dosage: 250MCG TWICE PER DAY
     Route: 064
  4. BETAMETHASONE [Suspect]
     Active Substance: BETAMETHASONE
     Indication: GRANULOMATOSIS WITH POLYANGIITIS
     Route: 064
  5. METHYLPREDNISOLONE [Suspect]
     Active Substance: METHYLPREDNISOLONE
     Indication: GRANULOMATOSIS WITH POLYANGIITIS
     Dosage: 4MG TWICE PER DAY
     Route: 064
  6. NADROPARIN CALCIUM [Suspect]
     Active Substance: NADROPARIN CALCIUM
     Indication: GRANULOMATOSIS WITH POLYANGIITIS
     Dosage: .3ML TWICE PER DAY
     Route: 064

REACTIONS (4)
  - Caesarean section [None]
  - Foetal exposure during pregnancy [Unknown]
  - Amniotic fluid index abnormal [Unknown]
  - Foetal growth restriction [Unknown]
